FAERS Safety Report 24963175 (Version 1)
Quarter: 2025Q1

REPORT INFORMATION
  Report Type: Spontaneous
  Country: IT (occurrence: IT)
  Receive Date: 20250213
  Receipt Date: 20250213
  Transmission Date: 20250409
  Serious: Yes (Hospitalization)
  Sender: JOHNSON AND JOHNSON
  Company Number: IT-CHEPLA-2025001356

PATIENT
  Age: 59 Year
  Sex: Male

DRUGS (24)
  1. IBRUTINIB [Suspect]
     Active Substance: IBRUTINIB
     Indication: Mantle cell lymphoma
     Dosage: SECOND LINE TREATMENT
     Dates: start: 202206
  2. VALGANCICLOVIR [Suspect]
     Active Substance: VALGANCICLOVIR
     Indication: Cytomegalovirus viraemia
  3. RITUXIMAB [Suspect]
     Active Substance: RITUXIMAB
     Indication: Mantle cell lymphoma
     Dates: start: 2021
  4. RITUXIMAB [Suspect]
     Active Substance: RITUXIMAB
  5. DOXORUBICIN [Suspect]
     Active Substance: DOXORUBICIN
     Indication: Mantle cell lymphoma
     Dates: start: 2021
  6. CYCLOPHOSPHAMIDE [Suspect]
     Active Substance: CYCLOPHOSPHAMIDE
     Indication: Mantle cell lymphoma
     Dates: start: 2021
  7. CYCLOPHOSPHAMIDE [Suspect]
     Active Substance: CYCLOPHOSPHAMIDE
  8. VINCRISTINE [Suspect]
     Active Substance: VINCRISTINE
     Indication: Mantle cell lymphoma
     Dates: start: 2021
  9. PREDNISONE [Suspect]
     Active Substance: PREDNISONE
     Indication: Mantle cell lymphoma
     Route: 048
     Dates: start: 2021
  10. CYTARABINE [Suspect]
     Active Substance: CYTARABINE
     Indication: Mantle cell lymphoma
     Dates: start: 2021
  11. CYTARABINE [Suspect]
     Active Substance: CYTARABINE
     Dates: start: 2021
  12. DEXAMETHASONE [Suspect]
     Active Substance: DEXAMETHASONE
     Indication: Mantle cell lymphoma
     Dates: start: 2021
  13. DEXAMETHASONE [Suspect]
     Active Substance: DEXAMETHASONE
     Route: 040
  14. DEXAMETHASONE [Suspect]
     Active Substance: DEXAMETHASONE
     Route: 040
  15. ETOPOSIDE [Suspect]
     Active Substance: ETOPOSIDE
     Indication: Mantle cell lymphoma
     Dates: start: 2021
  16. MELPHALAN [Suspect]
     Active Substance: MELPHALAN
     Indication: Mantle cell lymphoma
     Dates: start: 2021
  17. CISPLATIN [Suspect]
     Active Substance: CISPLATIN
     Indication: Mantle cell lymphoma
     Dates: start: 2021
  18. FLUDARABINE [Suspect]
     Active Substance: FLUDARABINE PHOSPHATE
     Indication: Mantle cell lymphoma
  19. ANAKINRA [Suspect]
     Active Substance: ANAKINRA
     Indication: Immune effector cell-associated neurotoxicity syndrome
  20. CARMUSTINE [Suspect]
     Active Substance: CARMUSTINE
     Indication: Mantle cell lymphoma
     Dates: start: 2021
  21. MAXIPIME [Concomitant]
     Active Substance: CEFEPIME HYDROCHLORIDE
     Indication: Product used for unknown indication
  22. TOCILIZUMAB [Concomitant]
     Active Substance: TOCILIZUMAB
     Indication: Product used for unknown indication
  23. PIPERACILLIN SODIUM\TAZOBACTAM SODIUM [Concomitant]
     Active Substance: PIPERACILLIN SODIUM\TAZOBACTAM SODIUM
     Indication: Product used for unknown indication
  24. BREXUCABTAGENE AUTOLEUCEL [Concomitant]
     Active Substance: BREXUCABTAGENE AUTOLEUCEL
     Indication: Mantle cell lymphoma

REACTIONS (4)
  - Diverticulitis [Unknown]
  - Cytomegalovirus infection [Unknown]
  - Intestinal perforation [Unknown]
  - Off label use [Unknown]
